FAERS Safety Report 10190293 (Version 2)
Quarter: 2014Q2

REPORT INFORMATION
  Report Type: Spontaneous
  Country: US (occurrence: US)
  Receive Date: 20140522
  Receipt Date: 20140522
  Transmission Date: 20141212
  Serious: No
  Sender: FDA-Public Use
  Company Number: US-ASTRAZENECA-2013SE93450

PATIENT
  Age: 31 Year
  Sex: Female

DRUGS (2)
  1. PULMICORT FLEXHALER [Suspect]
     Indication: ASTHMA
     Dosage: 180 MCG 1 PUFF,  TWO TIMES A DAY
     Route: 055
  2. VENTOLIN [Concomitant]
     Indication: ASTHMA

REACTIONS (3)
  - Asthma [Unknown]
  - Dysgeusia [Unknown]
  - Drug prescribing error [Unknown]
